FAERS Safety Report 9693009 (Version 3)
Quarter: 2013Q4

REPORT INFORMATION
  Report Type: Spontaneous
  Country: US (occurrence: US)
  Receive Date: 20131118
  Receipt Date: 20131121
  Transmission Date: 20140711
  Serious: Yes (Death, Hospitalization, Other)
  Sender: FDA-Public Use
  Company Number: US-PFIZER INC-2013325754

PATIENT
  Age: 91 Year
  Sex: Female

DRUGS (5)
  1. CEFTAZIDIME [Suspect]
     Indication: CHOLECYSTITIS ACUTE
     Dosage: UNK
     Route: 065
  2. VANCOMYCIN HCL [Suspect]
     Indication: CHOLECYSTITIS ACUTE
     Dosage: UNK
     Route: 065
  3. PIPERACILLIN/TAZOBACTAM [Suspect]
     Indication: CHOLECYSTITIS ACUTE
     Dosage: UNK
     Route: 065
  4. AMPICILLIN SODIUM/SULBACTAM SODIUM [Suspect]
     Indication: CHOLECYSTITIS ACUTE
     Dosage: UNK
     Route: 065
  5. AUGMENTIN [Suspect]
     Indication: CHOLECYSTITIS ACUTE
     Dosage: UNK
     Route: 065

REACTIONS (2)
  - Linear IgA disease [Fatal]
  - Toxic epidermal necrolysis [Fatal]
